FAERS Safety Report 7761923-9 (Version None)
Quarter: 2011Q3

REPORT INFORMATION
  Report Type: 
  Country: None (occurrence: None)
  Receive Date: 20110920
  Receipt Date: 20110913
  Transmission Date: 20111222
  Serious: Yes (Other)
  Sender: FDA-Public Use
  Company Number: US-PFIZER INC-2011217195

PATIENT
  Sex: Male

DRUGS (1)
  1. ZYVOX [Suspect]

REACTIONS (4)
  - BLINDNESS [None]
  - MENTAL STATUS CHANGES [None]
  - MEMORY IMPAIRMENT [None]
  - HYPERHIDROSIS [None]
